FAERS Safety Report 18491642 (Version 1)
Quarter: 2020Q4

REPORT INFORMATION
  Report Type: Spontaneous
  Country: US (occurrence: US)
  Receive Date: 20201111
  Receipt Date: 20201111
  Transmission Date: 20210114
  Serious: No
  Sender: FDA-Public Use
  Company Number: US-BAYER-2020-218915

PATIENT
  Sex: Female

DRUGS (1)
  1. KYLEENA [Suspect]
     Active Substance: LEVONORGESTREL
     Indication: CONTRACEPTION
     Dosage: 17.5 ?G PER DAY CONTINUOUSLY
     Route: 015

REACTIONS (9)
  - Insomnia [None]
  - Hot flush [None]
  - Nausea [None]
  - Bacterial vaginosis [Not Recovered/Not Resolved]
  - Depression [None]
  - Mood altered [None]
  - Anger [None]
  - Fungal infection [Not Recovered/Not Resolved]
  - Anxiety [None]
